FAERS Safety Report 6750844-6 (Version None)
Quarter: 2010Q2

REPORT INFORMATION
  Report Type: 
  Country: None (occurrence: None)
  Receive Date: 20100602
  Receipt Date: 20100331
  Transmission Date: 20101027
  Serious: Yes (Death, Hospitalization, Other)
  Sender: FDA-Public Use
  Company Number: US-BAYER-200942446NA

PATIENT
  Age: 50 Year
  Sex: Female
  Weight: 90 kg

DRUGS (22)
  1. YASMIN [Suspect]
     Indication: DYSMENORRHOEA
     Dosage: YASMIN 2 QD X 1 - 3 UNTIL BLEEDING STOPS, THEN TAKE ONE DAILY.
     Route: 048
     Dates: start: 20070326, end: 20070601
  2. YASMIN [Suspect]
     Dates: start: 20050914
  3. MULTI-VITAMINS [Concomitant]
  4. RETIN-A [Concomitant]
  5. SERZONE [Concomitant]
  6. VITAMIN E [Concomitant]
  7. ZOCOR [Concomitant]
     Indication: BLOOD CHOLESTEROL INCREASED
     Dates: start: 20010530
  8. PRAVACHOL [Concomitant]
     Indication: BLOOD CHOLESTEROL INCREASED
     Dates: start: 20010601
  9. MECLIZINE [Concomitant]
  10. PHENERGAN [Concomitant]
  11. HYDROCHLOROTHIAZIDE [Concomitant]
     Indication: VERTIGO
     Dates: start: 20061030
  12. HYDROCHLOROTHIAZIDE [Concomitant]
     Dates: start: 20020528
  13. XANAX [Concomitant]
     Indication: DEPRESSION
     Dates: start: 20030206
  14. LEXAPRO [Concomitant]
     Indication: DEPRESSION
     Dates: start: 20030206
  15. BEXTRA [Concomitant]
     Indication: DYSMENORRHOEA
  16. CLINORIL [Concomitant]
     Indication: DYSMENORRHOEA
     Dates: start: 20040329
  17. IBUPROFEN [Concomitant]
     Indication: HEADACHE
     Dates: start: 20051206
  18. CYMBALTA [Concomitant]
     Indication: ANTIDEPRESSANT THERAPY
     Dates: start: 20061030
  19. WATER PILLS [Concomitant]
     Indication: DIZZINESS
     Dates: start: 20061030
  20. DECONGESTANT [Concomitant]
     Indication: UPPER RESPIRATORY TRACT INFECTION
     Dates: start: 20060901
  21. ANTIHISTAMIN [Concomitant]
     Indication: UPPER RESPIRATORY TRACT INFECTION
     Dates: start: 20060901
  22. FLONAX [Concomitant]
     Indication: UPPER RESPIRATORY TRACT INFECTION
     Dates: start: 20061030

REACTIONS (20)
  - ACUTE RESPIRATORY FAILURE [None]
  - ANOXIC ENCEPHALOPATHY [None]
  - BRAIN HERNIATION [None]
  - BRAIN OEDEMA [None]
  - CARDIOGENIC SHOCK [None]
  - CEREBRAL CIRCULATORY FAILURE [None]
  - CONVULSION [None]
  - CYANOSIS [None]
  - DEEP VEIN THROMBOSIS [None]
  - DYSPNOEA [None]
  - ELECTROMECHANICAL DISSOCIATION [None]
  - HAEMATOCRIT DECREASED [None]
  - LOSS OF CONSCIOUSNESS [None]
  - METABOLIC ACIDOSIS [None]
  - MUSCULOSKELETAL STIFFNESS [None]
  - PAIN IN EXTREMITY [None]
  - PALLOR [None]
  - PULMONARY EMBOLISM [None]
  - PUPIL FIXED [None]
  - TACHYPNOEA [None]
